FAERS Safety Report 5921414-4 (Version None)
Quarter: 2008Q4

REPORT INFORMATION
  Report Type: 
  Country: None (occurrence: None)
  Receive Date: 20081014
  Receipt Date: 20081002
  Transmission Date: 20090506
  Serious: Yes (Hospitalization)
  Sender: FDA-Public Use
  Company Number: 2008BI025909

PATIENT
  Sex: Male
  Weight: 90.7194 kg

DRUGS (3)
  1. AVONEX [Suspect]
     Indication: MULTIPLE SCLEROSIS
     Dosage: 30 UG; QW; IM
     Route: 030
     Dates: start: 20070417
  2. . [Concomitant]
  3. . [Concomitant]

REACTIONS (5)
  - CONDITION AGGRAVATED [None]
  - FATIGUE [None]
  - MULTIPLE SCLEROSIS [None]
  - PARAESTHESIA [None]
  - STRESS [None]
